FAERS Safety Report 6849447-4 (Version None)
Quarter: 2010Q3

REPORT INFORMATION
  Report Type: 
  Country: None (occurrence: None)
  Receive Date: 20100716
  Receipt Date: 20070928
  Transmission Date: 20110219
  Serious: No
  Sender: FDA-Public Use
  Company Number: US-PFIZER INC-2007082959

PATIENT
  Sex: Female

DRUGS (3)
  1. CHANTIX [Suspect]
     Indication: SMOKING CESSATION THERAPY
     Route: 048
     Dates: start: 20070828
  2. ANTIDEPRESSANTS [Concomitant]
  3. DIAZEPAM [Concomitant]

REACTIONS (1)
  - RESTLESS LEGS SYNDROME [None]
